FAERS Safety Report 11067610 (Version 1)
Quarter: 2015Q2

REPORT INFORMATION
  Report Type: Spontaneous
  Country: US (occurrence: None)
  Receive Date: 20150424
  Receipt Date: 20150424
  Transmission Date: 20150821
  Serious: Yes (Hospitalization)
  Sender: FDA-Public Use
  Company Number: None

PATIENT
  Sex: Female
  Weight: 64.6 kg

DRUGS (11)
  1. FUROSEMIDE (LASIX) 20MG QD [Concomitant]
  2. SPIRONOLACTONE (ALDACTONE) 50MG QD [Concomitant]
  3. HEPA F. NO. 1A - DIETARY SUPPLEMENT FOR LIVER HEALTH 2 CAPSULES TID [Concomitant]
  4. ZHANG - DIETARY SUPPLEMENT FOR LIVER HEALTH 2 TABS TID [Concomitant]
  5. HEPAPRO - MVM LIVER FORMULA 1 TABLET BID [Concomitant]
  6. LIGUSTRIN - DIETARY SUPPLEMENT FOR LIVER HEALTH 1 TABLET TID [Concomitant]
  7. CIRCULATION P - DIETARY SUPPLEMENT FOR LIVER HEALTH 1 TABLET TID [Concomitant]
  8. MULTIVITAMIN 2 TABS BID [Concomitant]
  9. HARVONI [Suspect]
     Active Substance: LEDIPASVIR\SOFOSBUVIR
     Indication: HEPATITIS C
     Route: 048
     Dates: start: 20150109
  10. LACTULOSE (CHRONULAC) 30ML QD [Concomitant]
  11. ESCITALOPRAM (LEXAPRO) 10MG QD [Concomitant]

REACTIONS (6)
  - Acute kidney injury [None]
  - Incorrect dose administered [None]
  - Dizziness [None]
  - Ascites [None]
  - Streptococcus test positive [None]
  - Pancytopenia [None]

NARRATIVE: CASE EVENT DATE: 20150324
